FAERS Safety Report 11440144 (Version 7)
Quarter: 2016Q1

REPORT INFORMATION
  Report Type: Spontaneous
  Country: US (occurrence: US)
  Receive Date: 20150901
  Receipt Date: 20160229
  Transmission Date: 20160525
  Serious: Yes (Congenital Anomaly, Other)
  Sender: FDA-Public Use
  Company Number: US-ELI_LILLY_AND_COMPANY-US201508007492

PATIENT

DRUGS (5)
  1. PRENATAL VITAMINS                  /08195401/ [Concomitant]
     Route: 064
  2. ALBUTEROL                          /00139501/ [Concomitant]
     Active Substance: ALBUTEROL
     Route: 064
  3. CIMETIDINE [Concomitant]
     Active Substance: CIMETIDINE
     Route: 064
  4. NEXIUM [Concomitant]
     Active Substance: ESOMEPRAZOLE MAGNESIUM
     Route: 064
  5. PROZAC [Suspect]
     Active Substance: FLUOXETINE HYDROCHLORIDE
     Indication: PRODUCT USED FOR UNKNOWN INDICATION
     Dosage: 1 DF, UNKNOWN
     Route: 064

REACTIONS (9)
  - Spondylolysis [Unknown]
  - Cystic fibrosis carrier [Unknown]
  - Acrochordon [Unknown]
  - Cephalhaematoma [Unknown]
  - Spondylolisthesis [Unknown]
  - Scoliosis [Unknown]
  - Macrosomia [Unknown]
  - Spina bifida occulta [Unknown]
  - Foetal exposure during pregnancy [Unknown]
